FAERS Safety Report 16796024 (Version 1)
Quarter: 2019Q3

REPORT INFORMATION
  Report Type: Spontaneous
  Country: NL (occurrence: NL)
  Receive Date: 20190911
  Receipt Date: 20190911
  Transmission Date: 20191005
  Serious: Yes (Death)
  Sender: FDA-Public Use
  Company Number: NL-MYLANLABS-2019M1085613

PATIENT
  Age: 68 Year
  Sex: Male
  Weight: 121.3 kg

DRUGS (20)
  1. ACENOCOUMAROL [Concomitant]
     Active Substance: ACENOCOUMAROL
     Dosage: UNK
     Dates: start: 20160223
  2. PREDNISOLON                        /00016201/ [Concomitant]
     Active Substance: PREDNISOLONE
     Dosage: UNK
  3. AMLODIPINE [Concomitant]
     Active Substance: AMLODIPINE BESYLATE
     Dates: start: 20160407
  4. PERINDOPRIL [Concomitant]
     Active Substance: PERINDOPRIL
     Dosage: UNK
     Dates: start: 20171208
  5. CRESTOR [Concomitant]
     Active Substance: ROSUVASTATIN CALCIUM
     Dates: start: 20171102
  6. OXAZEPAM. [Concomitant]
     Active Substance: OXAZEPAM
     Dates: start: 20160329
  7. MACROGOL [Concomitant]
     Active Substance: POLYETHYLENE GLYCOLS
     Dosage: UNK
  8. METOPROLOL. [Concomitant]
     Active Substance: METOPROLOL
     Dosage: UNK
     Dates: start: 20171027
  9. ALFACALCIDOL [Concomitant]
     Active Substance: ALFACALCIDOL
     Dosage: UNK
     Dates: start: 20160505
  10. BUMETANIDE SANDOZ [Concomitant]
     Active Substance: BUMETANIDE
     Dosage: UNK
  11. AMIODARONE [Suspect]
     Active Substance: AMIODARONE
     Indication: ATRIAL FIBRILLATION
     Dosage: 1DD 200MG
     Route: 048
     Dates: start: 20170101, end: 20190322
  12. MIRTAZAPINE/MYLAN [Concomitant]
     Active Substance: MIRTAZAPINE
     Dosage: UNK
  13. EZETIMIBA [Concomitant]
     Active Substance: EZETIMIBE
     Dosage: UNK
     Dates: start: 20180530
  14. PANTOPRAZOL PENSA [Concomitant]
     Active Substance: PANTOPRAZOLE SODIUM
     Dosage: UNK
  15. COLCHICINE. [Concomitant]
     Active Substance: COLCHICINE
     Dosage: UNK
  16. GLICLAZIDE [Concomitant]
     Active Substance: GLICLAZIDE
     Dosage: UNK
     Dates: start: 20180530
  17. FOLIUMZUUR [Concomitant]
     Active Substance: FOLIC ACID
     Dosage: UNK
  18. ZOPICLON [Concomitant]
     Active Substance: ZOPICLONE
     Dosage: UNK
  19. OXYCODON HCL ABZ [Concomitant]
     Dosage: UNK
     Dates: start: 20170522
  20. KETOCONAZOL [Concomitant]
     Active Substance: KETOCONAZOLE
     Dosage: UNK

REACTIONS (1)
  - Interstitial lung disease [Fatal]

NARRATIVE: CASE EVENT DATE: 20190305
